FAERS Safety Report 8050867-3 (Version None)
Quarter: 2012Q1

REPORT INFORMATION
  Report Type: 
  Country: None (occurrence: None)
  Receive Date: 20120117
  Receipt Date: 20120106
  Transmission Date: 20120608
  Serious: Yes (Hospitalization, Other)
  Sender: FDA-Public Use
  Company Number: PHHY2012CA002368

PATIENT
  Age: 39 Year
  Sex: Male

DRUGS (3)
  1. CLOZAPINE [Suspect]
     Indication: SCHIZOPHRENIA
     Dosage: 550 MG, DAILY
  2. DIVALPROEX SODIUM [Concomitant]
     Dosage: 1000 MG/DAY FOR 16 WEEKS
  3. CLOZAPINE [Suspect]
     Dosage: 450 MG, AT BEDTIME

REACTIONS (25)
  - CYCLOTHYMIC DISORDER [None]
  - ENCEPHALOPATHY [None]
  - ELECTROENCEPHALOGRAM ABNORMAL [None]
  - APHASIA [None]
  - PSYCHOTIC DISORDER [None]
  - IRRITABILITY [None]
  - EXECUTIVE DYSFUNCTION [None]
  - DISTRACTIBILITY [None]
  - AGITATION [None]
  - AFFECTIVE DISORDER [None]
  - THINKING ABNORMAL [None]
  - MEMORY IMPAIRMENT [None]
  - ANOSOGNOSIA [None]
  - DELIRIUM [None]
  - COGNITIVE DISORDER [None]
  - CERVICAL VERTEBRAL FRACTURE [None]
  - JUDGEMENT IMPAIRED [None]
  - POSTURE ABNORMAL [None]
  - POSTICTAL STATE [None]
  - DYSPHORIA [None]
  - NEUROLEPTIC MALIGNANT SYNDROME [None]
  - CONVULSION [None]
  - TORTICOLLIS [None]
  - PERSECUTORY DELUSION [None]
  - DRUG INEFFECTIVE [None]
